FAERS Safety Report 7164073-8 (Version None)
Quarter: 2010Q4

REPORT INFORMATION
  Report Type: 
  Country: None (occurrence: None)
  Receive Date: 20101215
  Receipt Date: 20101203
  Transmission Date: 20110411
  Serious: Yes (Hospitalization, Other)
  Sender: FDA-Public Use
  Company Number: DE-ACTELION-A-US2010-42609

PATIENT

DRUGS (1)
  1. ILOPROST INHALATION ROW [Suspect]
     Dosage: 45 UG, UNK
     Route: 055
     Dates: start: 20071106, end: 20101128

REACTIONS (3)
  - CARDIAC FAILURE [None]
  - DYSPNOEA [None]
  - INFECTION [None]
